FAERS Safety Report 6604631-X (Version None)
Quarter: 2010Q1

REPORT INFORMATION
  Report Type: 
  Country: None (occurrence: None)
  Receive Date: 20100226
  Receipt Date: 20090618
  Transmission Date: 20100710
  Serious: Yes (Hospitalization)
  Sender: FDA-Public Use
  Company Number: CN-ROCHE-627528

PATIENT
  Sex: Male
  Weight: 68 kg

DRUGS (10)
  1. BEVACIZUMAB [Suspect]
     Dosage: LAST DOSE PRIOR TO SAE WAS ON 08 FEB 2007
     Route: 042
     Dates: start: 20060916
  2. CAPECITABINE [Suspect]
     Dosage: LAST DOSE PRIOR TO SAE WAS ON 22 FEB 2007; DOSE FREQ: 14 DAYS/CYCL
     Route: 048
     Dates: start: 20060916
  3. OXALIPLATIN [Suspect]
     Dosage: LAST DOSE PRIOR TO SAE WAS ON 08 FEB 2007
     Route: 042
     Dates: start: 20060916
  4. BENAZEPRIL HYDROCHLORIDE [Concomitant]
     Dates: start: 20070101
  5. GLICLAZIDE [Concomitant]
     Dates: start: 20070101
  6. ISOSORBIDE DINITRATE [Concomitant]
     Dates: start: 20081122, end: 20081203
  7. METOPROLOL TARTRATE [Concomitant]
     Dates: start: 20081122
  8. PHENOLPHTHALEINE [Concomitant]
     Dates: start: 20081122, end: 20081203
  9. NOVOLIN N [Concomitant]
     Dates: start: 20081122, end: 20081203
  10. NOVOLIN R [Concomitant]
     Dates: start: 20081122, end: 20081203

REACTIONS (2)
  - CORONARY ARTERY DISEASE [None]
  - MYOCARDIAL INFARCTION [None]
